FAERS Safety Report 22036632 (Version 1)
Quarter: 2023Q1

REPORT INFORMATION
  Report Type: Spontaneous
  Country: US (occurrence: None)
  Receive Date: 20230223
  Receipt Date: 20230223
  Transmission Date: 20230418
  Serious: Yes (Other)
  Sender: FDA-Public Use
  Company Number: None

PATIENT
  Age: 50 Year
  Sex: Female
  Weight: 76.2 kg

DRUGS (1)
  1. OLMESARTAN [Suspect]
     Active Substance: OLMESARTAN
     Indication: Hypertension
     Dosage: FREQUENCY : DAILY;?
     Route: 048
     Dates: start: 20230214, end: 20230215

REACTIONS (10)
  - Therapeutic response changed [None]
  - Product substitution issue [None]
  - Nonspecific reaction [None]
  - Treatment failure [None]
  - Blood pressure inadequately controlled [None]
  - Drug intolerance [None]
  - Nausea [None]
  - Tachycardia [None]
  - Hyperhidrosis [None]
  - Blood pressure increased [None]

NARRATIVE: CASE EVENT DATE: 20230215
